FAERS Safety Report 5511704-1 (Version None)
Quarter: 2007Q4

REPORT INFORMATION
  Report Type: 
  Country: None (occurrence: None)
  Receive Date: 20071109
  Receipt Date: 20071030
  Transmission Date: 20080405
  Serious: Yes (Hospitalization, Other)
  Sender: FDA-Public Use
  Company Number: US-PFIZER INC-2007051782

PATIENT
  Sex: Female
  Weight: 89.09 kg

DRUGS (7)
  1. LIPITOR [Suspect]
     Indication: BLOOD CHOLESTEROL INCREASED
  2. CELEBREX [Concomitant]
  3. DETROL LA [Concomitant]
  4. TRAMADOL HCL [Concomitant]
  5. SENNA-GEN [Concomitant]
  6. ACIPHEX [Concomitant]
  7. FERROUS SULFATE TAB [Concomitant]

REACTIONS (3)
  - KNEE ARTHROPLASTY [None]
  - MUSCULAR WEAKNESS [None]
  - MYALGIA [None]
